FAERS Safety Report 10943893 (Version 3)
Quarter: 2015Q2

REPORT INFORMATION
  Report Type: Spontaneous
  Country: US (occurrence: US)
  Receive Date: 20150322
  Receipt Date: 20150420
  Transmission Date: 20150821
  Serious: Yes (Death, Other)
  Sender: FDA-Public Use
  Company Number: US-MERCK-1503USA009362

PATIENT
  Age: 59 Year
  Sex: Female
  Weight: 75.74 kg

DRUGS (3)
  1. CYCLOPHOSPHAMIDE (+) DOXORUBICIN [Concomitant]
     Dosage: *4
  2. TAXOL [Concomitant]
     Active Substance: PACLITAXEL
     Dosage: *4
  3. JANUVIA [Suspect]
     Active Substance: SITAGLIPTIN PHOSPHATE
     Indication: TYPE 2 DIABETES MELLITUS
     Dosage: TOTAL DAILY DOSE 100 MG
     Route: 048
     Dates: start: 20120529

REACTIONS (1)
  - Breast cancer female [Fatal]

NARRATIVE: CASE EVENT DATE: 201401
